FAERS Safety Report 15193073 (Version 4)
Quarter: 2018Q3

REPORT INFORMATION
  Report Type: Spontaneous
  Country: FR (occurrence: FR)
  Receive Date: 20180725
  Receipt Date: 20180824
  Transmission Date: 20181010
  Serious: Yes (Hospitalization, Other)
  Sender: FDA-Public Use
  Company Number: FR-CANTON LABORATORIES, LLC-2052696

PATIENT
  Age: 62 Year
  Sex: Female
  Weight: 62 kg

DRUGS (34)
  1. KARDEGIC [Concomitant]
     Active Substance: ASPIRIN DL-LYSINE
     Route: 065
  2. ANTALNOX [Suspect]
     Active Substance: NAPROXEN SODIUM
     Route: 065
     Dates: start: 20160311
  3. FLUVASTATIN [Suspect]
     Active Substance: FLUVASTATIN SODIUM
     Route: 065
     Dates: start: 20110201, end: 20160517
  4. ALTIZIDE, SPIRONOLACTONE [Suspect]
     Active Substance: ALTHIAZIDE\SPIRONOLACTONE
     Route: 065
     Dates: start: 20130301
  5. ADVAGRAF [Concomitant]
     Active Substance: TACROLIMUS
     Route: 048
  6. SECTRAL [Concomitant]
     Active Substance: ACEBUTOLOL HYDROCHLORIDE
     Route: 048
  7. ALTIZIDE, SPIRONOLACTONE [Suspect]
     Active Substance: ALTHIAZIDE\SPIRONOLACTONE
     Route: 065
     Dates: start: 20160321
  8. ATORVASTATIN CALCIUM. [Suspect]
     Active Substance: ATORVASTATIN CALCIUM
     Route: 065
     Dates: start: 20150922
  9. CELLCEPT [Concomitant]
     Active Substance: MYCOPHENOLATE MOFETIL\MYCOPHENOLATE MOFETIL HYDROCHLORIDE
     Route: 065
  10. ATORVASTATIN CALCIUM. [Suspect]
     Active Substance: ATORVASTATIN CALCIUM
     Route: 065
     Dates: start: 20160301, end: 20160517
  11. JANUVIA [Concomitant]
     Active Substance: SITAGLIPTIN PHOSPHATE
     Route: 065
  12. LANSOPRAZOLE. [Concomitant]
     Active Substance: LANSOPRAZOLE
     Route: 048
  13. RESIKALI [Concomitant]
     Active Substance: CALCIUM POLYSTYRENE SULFONATE
     Route: 065
  14. VOGALENE [Concomitant]
     Active Substance: METOPIMAZINE
     Route: 065
     Dates: start: 20160321
  15. RAMIPRIL. [Suspect]
     Active Substance: RAMIPRIL
     Route: 065
     Dates: start: 20180527
  16. NAPROXEN SODIUM. [Suspect]
     Active Substance: NAPROXEN SODIUM
     Route: 065
     Dates: start: 20160311, end: 20160730
  17. NAPROSYN [Suspect]
     Active Substance: NAPROXEN
     Indication: BACK PAIN
     Route: 065
     Dates: start: 20160322, end: 20160730
  18. ALDACTAZINE [Suspect]
     Active Substance: ALTHIAZIDE\SPIRONOLACTONE
     Route: 065
     Dates: start: 20180527
  19. RAMIPRIL. [Suspect]
     Active Substance: RAMIPRIL
     Route: 065
     Dates: start: 20121105
  20. MEDROL [Concomitant]
     Active Substance: METHYLPREDNISOLONE
     Route: 065
  21. OFLOCET [Concomitant]
     Active Substance: OFLOXACIN
     Route: 065
  22. PROGRAF [Concomitant]
     Active Substance: TACROLIMUS\TACROLIMUS ANHYDROUS
     Route: 065
  23. CHOLECALCIFEROL [Concomitant]
     Active Substance: CHOLECALCIFEROL
     Route: 065
  24. MINERALS NOS, VITAMIN NOS [Concomitant]
     Route: 048
  25. OMEPRAZOLE. [Concomitant]
     Active Substance: OMEPRAZOLE
     Route: 065
     Dates: start: 20160331
  26. ANTALNOX [Suspect]
     Active Substance: NAPROXEN SODIUM
     Route: 065
     Dates: start: 20160730
  27. ACEBUTOLOL HYDROCHLORIDE. [Suspect]
     Active Substance: ACEBUTOLOL HYDROCHLORIDE
     Route: 065
     Dates: start: 20121105
  28. TANGANIL [Suspect]
     Active Substance: ACETYLLEUCINE
     Route: 065
  29. LERCANIDIPINE [Suspect]
     Active Substance: LERCANIDIPINE
     Route: 065
     Dates: start: 20180527
  30. MELOXICAM. [Suspect]
     Active Substance: MELOXICAM
     Route: 065
     Dates: start: 201603
  31. BACTRIM [Concomitant]
     Active Substance: SULFAMETHOXAZOLE\TRIMETHOPRIM
     Route: 048
  32. IXPRIM [Suspect]
     Active Substance: ACETAMINOPHEN\TRAMADOL HYDROCHLORIDE
     Route: 065
     Dates: start: 20110816
  33. ATORVASTATIN CALCIUM. [Suspect]
     Active Substance: ATORVASTATIN CALCIUM
     Route: 065
     Dates: start: 20160730
  34. ACEBUTOLOL HYDROCHLORIDE. [Suspect]
     Active Substance: ACEBUTOLOL HYDROCHLORIDE
     Route: 065
     Dates: start: 20180527

REACTIONS (5)
  - Hepatic necrosis [Unknown]
  - Gastrointestinal disorder [Unknown]
  - Sleep apnoea syndrome [Unknown]
  - Hepatitis acute [Unknown]
  - Jaundice [Unknown]

NARRATIVE: CASE EVENT DATE: 20160408
